FAERS Safety Report 10008909 (Version 1)
Quarter: 2014Q1

REPORT INFORMATION
  Report Type: Spontaneous
  Country: US (occurrence: US)
  Receive Date: 20140313
  Receipt Date: 20140313
  Transmission Date: 20141002
  Serious: Yes (Life-Threatening, Other)
  Sender: FDA-Public Use
  Company Number: PHHY2014US027629

PATIENT
  Age: 56 Year
  Sex: Female

DRUGS (7)
  1. HYDROCORTISONE [Suspect]
     Indication: ADRENAL INSUFFICIENCY
  2. SODIUM CHLORIDE [Suspect]
     Dosage: 2.5 L, UNK
     Route: 042
  3. SODIUM CHLORIDE [Suspect]
     Dosage: 8 L, UNK
  4. DOPAMINE [Concomitant]
     Indication: BLOOD PRESSURE ABNORMAL
  5. NOREPINEFRINE [Concomitant]
     Indication: BLOOD PRESSURE ABNORMAL
  6. PIPERACILLIN/TAZOBACTAM [Concomitant]
     Indication: PNEUMONIA
  7. FLUCONAZOLE [Concomitant]
     Indication: URINARY TRACT INFECTION

REACTIONS (2)
  - Hypokalaemia [Recovered/Resolved]
  - Hypomagnesaemia [Unknown]
